FAERS Safety Report 7042474-6 (Version None)
Quarter: 2010Q4

REPORT INFORMATION
  Report Type: 
  Country: None (occurrence: None)
  Receive Date: 20101013
  Receipt Date: 20100408
  Transmission Date: 20110411
  Serious: No
  Sender: FDA-Public Use
  Company Number: US-ASTRAZENECA-2010SE15445

PATIENT
  Age: 593 Month
  Sex: Male
  Weight: 136.1 kg

DRUGS (15)
  1. SYMBICORT [Suspect]
     Indication: ASTHMA
     Dosage: 80/4.5 2 PUFFS
     Route: 055
     Dates: start: 20080101
  2. SYMBICORT [Suspect]
     Indication: CHRONIC OBSTRUCTIVE PULMONARY DISEASE
     Dosage: 80/4.5 2 PUFFS
     Route: 055
     Dates: start: 20080101
  3. LEVOTHYROXINE SODIUM [Concomitant]
  4. CYTOMEL [Concomitant]
  5. LISINOPRIL [Concomitant]
  6. AMLODIPINE [Concomitant]
  7. CLONIDINE [Concomitant]
  8. MAXZIDE [Concomitant]
  9. ZETIA [Concomitant]
  10. TESTOSTERONE [Concomitant]
  11. ALLOPURINOL [Concomitant]
  12. HYDROCHLOROTHIAZIDE [Concomitant]
  13. NORCO [Concomitant]
  14. CARVEDILOL [Concomitant]
  15. MELOXICAM [Concomitant]
     Indication: ARTHRITIS

REACTIONS (2)
  - DRUG DOSE OMISSION [None]
  - DYSPNOEA [None]
